FAERS Safety Report 4559520-1 (Version None)
Quarter: 2005Q1

REPORT INFORMATION
  Report Type: 
  Country: None (occurrence: None)
  Receive Date: 20050119
  Receipt Date: 20050107
  Transmission Date: 20050727
  Serious: Yes (Life-Threatening, Other)
  Sender: FDA-Public Use
  Company Number: 430020M04DEU

PATIENT
  Age: 41 Year
  Sex: Female

DRUGS (5)
  1. MITOXANTRONE [Suspect]
     Indication: MULTIPLE SCLEROSIS
     Dosage: 12 MG/M2 INTRAVENOUS ; 12 MG/M2 , INTRAVENOUS ; 10 MG/M2 INTRAVENOUS ; 8 MG/M2 INTRAVENOUS ; 8 MG/M2
     Route: 042
     Dates: start: 20010608, end: 20010608
  2. MITOXANTRONE [Suspect]
     Indication: MULTIPLE SCLEROSIS
     Dosage: 12 MG/M2 INTRAVENOUS ; 12 MG/M2 , INTRAVENOUS ; 10 MG/M2 INTRAVENOUS ; 8 MG/M2 INTRAVENOUS ; 8 MG/M2
     Route: 042
     Dates: start: 20010928, end: 20010928
  3. MITOXANTRONE [Suspect]
     Indication: MULTIPLE SCLEROSIS
     Dosage: 12 MG/M2 INTRAVENOUS ; 12 MG/M2 , INTRAVENOUS ; 10 MG/M2 INTRAVENOUS ; 8 MG/M2 INTRAVENOUS ; 8 MG/M2
     Route: 042
     Dates: start: 20020201, end: 20020201
  4. MITOXANTRONE [Suspect]
     Indication: MULTIPLE SCLEROSIS
     Dosage: 12 MG/M2 INTRAVENOUS ; 12 MG/M2 , INTRAVENOUS ; 10 MG/M2 INTRAVENOUS ; 8 MG/M2 INTRAVENOUS ; 8 MG/M2
     Route: 042
     Dates: start: 20020517, end: 20020517
  5. MITOXANTRONE [Suspect]
     Indication: MULTIPLE SCLEROSIS
     Dosage: 12 MG/M2 INTRAVENOUS ; 12 MG/M2 , INTRAVENOUS ; 10 MG/M2 INTRAVENOUS ; 8 MG/M2 INTRAVENOUS ; 8 MG/M2
     Route: 042
     Dates: start: 20020820, end: 20020820

REACTIONS (5)
  - ACUTE PROMYELOCYTIC LEUKAEMIA [None]
  - BONE MARROW TRANSPLANT [None]
  - HAEMOGLOBIN DECREASED [None]
  - PLATELET COUNT DECREASED [None]
  - VAGINAL HAEMORRHAGE [None]
